FAERS Safety Report 13015386 (Version 1)
Quarter: 2016Q4

REPORT INFORMATION
  Report Type: Spontaneous
  Country: US (occurrence: US)
  Receive Date: 20161211
  Receipt Date: 20161211
  Transmission Date: 20170207
  Serious: No
  Sender: FDA-Public Use
  Company Number: US-009507513-1612USA001162

PATIENT
  Sex: Female
  Weight: 73.47 kg

DRUGS (1)
  1. NEXPLANON [Suspect]
     Active Substance: ETONOGESTREL
     Dosage: 1 IMPLANT/ EVERY 3 YEARS
     Route: 059
     Dates: start: 20161118

REACTIONS (8)
  - Complication of device removal [Not Recovered/Not Resolved]
  - Pruritus [Unknown]
  - Complication associated with device [Not Recovered/Not Resolved]
  - Discomfort [Unknown]
  - Implant site scar [Unknown]
  - Implant site swelling [Unknown]
  - Pain [Unknown]
  - Implant site fibrosis [Unknown]

NARRATIVE: CASE EVENT DATE: 2016
